FAERS Safety Report 23363842 (Version 1)
Quarter: 2024Q1

REPORT INFORMATION
  Report Type: Spontaneous
  Country: US (occurrence: US)
  Receive Date: 20240104
  Receipt Date: 20240104
  Transmission Date: 20240409
  Serious: No
  Sender: FDA-Public Use
  Company Number: US-SUN PHARMACEUTICAL INDUSTRIES LTD-2023R1-392837

PATIENT
  Sex: Female

DRUGS (1)
  1. GUANFACINE [Suspect]
     Active Substance: GUANFACINE
     Indication: Hypertension
     Dosage: UNK
     Route: 065
     Dates: start: 20230524

REACTIONS (4)
  - Abdominal distension [Unknown]
  - Arthritis [Unknown]
  - Brain fog [Unknown]
  - Rash pruritic [Unknown]
